FAERS Safety Report 5054150-X (Version None)
Quarter: 2006Q3

REPORT INFORMATION
  Report Type: 
  Country: None (occurrence: None)
  Receive Date: 20060713
  Receipt Date: 20060626
  Transmission Date: 20061208
  Serious: Yes (Hospitalization)
  Sender: FDA-Public Use
  Company Number: 2006EU001923

PATIENT
  Age: 40 Year
  Sex: Male

DRUGS (3)
  1. PROGRAF [Suspect]
     Indication: RENAL TRANSPLANT
     Dosage: 10 MG,
  2. MYCOPHENOLATE MOFETIL [Suspect]
     Indication: RENAL TRANSPLANT
     Dosage: 2000 MG,
  3. DEXAMETHASONE [Suspect]
     Indication: RENAL TRANSPLANT
     Dosage: 20 MG,

REACTIONS (7)
  - CHOROIDITIS [None]
  - HERPETIC STOMATITIS [None]
  - KIDNEY TRANSPLANT REJECTION [None]
  - NECROTISING RETINITIS [None]
  - RETINAL ISCHAEMIA [None]
  - RETINAL TEAR [None]
  - VISUAL DISTURBANCE [None]
